FAERS Safety Report 5290634-7 (Version None)
Quarter: 2007Q2

REPORT INFORMATION
  Report Type: 
  Country: None (occurrence: None)
  Receive Date: 20070409
  Receipt Date: 20070405
  Transmission Date: 20071010
  Serious: Yes (Other)
  Sender: FDA-Public Use
  Company Number: US-GLAXOSMITHKLINE-A0636874A

PATIENT
  Age: 30 Year
  Sex: Female

DRUGS (2)
  1. WELLBUTRIN [Suspect]
     Indication: DRUG USE FOR UNKNOWN INDICATION
     Route: 048
  2. LEXAPRO [Concomitant]

REACTIONS (3)
  - HYPERHIDROSIS [None]
  - NAIL DISCOLOURATION [None]
  - YELLOW SKIN [None]
